FAERS Safety Report 18738890 (Version 1)
Quarter: 2021Q1

REPORT INFORMATION
  Report Type: Other
  Country: FR (occurrence: FR)
  Receive Date: 20210114
  Receipt Date: 20210114
  Transmission Date: 20210419
  Serious: Yes (Other)
  Sender: FDA-Public Use
  Company Number: FR-ROCHE-2746676

PATIENT
  Age: 26 Year
  Sex: Female

DRUGS (1)
  1. BEVACIZUMAB. [Suspect]
     Active Substance: BEVACIZUMAB
     Indication: TRIPLE NEGATIVE BREAST CANCER
     Route: 065

REACTIONS (6)
  - Pre-eclampsia [Unknown]
  - Foetal growth restriction [Unknown]
  - HELLP syndrome [Unknown]
  - Placental insufficiency [Unknown]
  - Maternal exposure before pregnancy [Unknown]
  - Cell marker decreased [Unknown]
